FAERS Safety Report 8153968-4 (Version None)
Quarter: 2012Q1

REPORT INFORMATION
  Report Type: 
  Country: None (occurrence: None)
  Receive Date: 20120221
  Receipt Date: 20120221
  Transmission Date: 20120608
  Serious: Yes (Other)
  Sender: FDA-Public Use
  Company Number: None

PATIENT
  Age: 27 Year
  Sex: Female
  Weight: 121.56 kg

DRUGS (1)
  1. CYMBALTA [Suspect]
     Indication: BACK INJURY
     Dosage: 60.0 MG
     Route: 048
     Dates: start: 20110103, end: 20120217

REACTIONS (6)
  - DRY MOUTH [None]
  - HEADACHE [None]
  - CONSTIPATION [None]
  - MOOD ALTERED [None]
  - DRUG INEFFECTIVE [None]
  - DIZZINESS [None]
